FAERS Safety Report 22282591 (Version 2)
Quarter: 2023Q2

REPORT INFORMATION
  Report Type: Spontaneous
  Country: DE (occurrence: DE)
  Receive Date: 20230504
  Receipt Date: 20230523
  Transmission Date: 20230722
  Serious: Yes (Death, Other)
  Sender: FDA-Public Use
  Company Number: None

PATIENT
  Age: 69 Year
  Sex: Female
  Weight: 71 kg

DRUGS (9)
  1. GEMCITABINE [Suspect]
     Active Substance: GEMCITABINE
     Indication: Chemotherapy
     Route: 042
     Dates: start: 20230224
  2. GEMCITABINE [Suspect]
     Active Substance: GEMCITABINE
     Route: 042
     Dates: start: 20230303
  3. CISPLATIN [Suspect]
     Active Substance: CISPLATIN
     Indication: Chemotherapy
     Route: 042
     Dates: start: 20230303
  4. CISPLATIN [Suspect]
     Active Substance: CISPLATIN
     Route: 042
     Dates: start: 20230224
  5. DURVALUMAB [Suspect]
     Active Substance: DURVALUMAB
     Indication: Product used for unknown indication
     Route: 042
     Dates: start: 20230224
  6. BISOPROLOL [Concomitant]
     Active Substance: BISOPROLOL
     Indication: Product used for unknown indication
     Route: 065
     Dates: end: 20230322
  7. APIXABAN [Concomitant]
     Active Substance: APIXABAN
     Indication: Product used for unknown indication
     Route: 065
     Dates: end: 20230322
  8. AMIODARONE [Concomitant]
     Active Substance: AMIODARONE
     Indication: Product used for unknown indication
     Route: 048
     Dates: end: 20230323
  9. PIPERACILLIN SODIUM\TAZOBACTAM SODIUM [Concomitant]
     Active Substance: PIPERACILLIN SODIUM\TAZOBACTAM SODIUM
     Indication: Cholangitis
     Dosage: 4.5 G 3X TGL.
     Route: 042
     Dates: start: 20230317, end: 20230322

REACTIONS (2)
  - Cholangitis infective [Fatal]
  - Acute kidney injury [Fatal]

NARRATIVE: CASE EVENT DATE: 20230320
